FAERS Safety Report 10763938 (Version 1)
Quarter: 2015Q1

REPORT INFORMATION
  Report Type: Other
  Country: US (occurrence: US)
  Receive Date: 20150204
  Receipt Date: 20150204
  Transmission Date: 20150721
  Serious: No
  Sender: FDA-Public Use
  Company Number: US-ACORDA-ACO_101647_2014

PATIENT
  Sex: Female

DRUGS (2)
  1. AMPYRA [Suspect]
     Active Substance: DALFAMPRIDINE
     Indication: MUSCULOSKELETAL STIFFNESS
  2. AMPYRA [Suspect]
     Active Substance: DALFAMPRIDINE
     Indication: GAIT DISTURBANCE
     Dosage: 10 MG, BID
     Route: 048

REACTIONS (2)
  - Gait disturbance [Not Recovered/Not Resolved]
  - Drug dose omission [Recovered/Resolved]
